FAERS Safety Report 5689736-2 (Version None)
Quarter: 2008Q1

REPORT INFORMATION
  Report Type: 
  Country: None (occurrence: None)
  Receive Date: 20080328
  Receipt Date: 20080318
  Transmission Date: 20080703
  Serious: Yes (Hospitalization)
  Sender: FDA-Public Use
  Company Number: 1-15911183

PATIENT
  Age: 82 Year
  Sex: Female
  Weight: 51.7101 kg

DRUGS (9)
  1. FENTANYL [Suspect]
     Indication: PAIN
     Dosage: 25MCG/HR EVERY 72 HR, TRANSDERMAL
     Route: 062
     Dates: start: 20080108, end: 20080220
  2. NORVASC [Concomitant]
  3. DIGOXIN [Concomitant]
  4. EXELON PATCH (RIVASTIGMINE TRANSDERMAL SYSTEM) 9.5 MG [Concomitant]
  5. KEPPRA (LEVETIRACETAM) 250 MG [Concomitant]
  6. NEXIUM [Concomitant]
  7. SEROQUEL (QUETIAPINE FUMARATE) 25 MG [Concomitant]
  8. ZOCOR [Concomitant]
  9. COUMADIN (WARFARIN SODIUM) 4.5 MG [Concomitant]

REACTIONS (3)
  - LOSS OF CONSCIOUSNESS [None]
  - OVERDOSE [None]
  - SOMNOLENCE [None]
